FAERS Safety Report 9734279 (Version 1)
Quarter: 2013Q4

REPORT INFORMATION
  Report Type: Spontaneous
  Country: CA (occurrence: CA)
  Receive Date: 20131205
  Receipt Date: 20131205
  Transmission Date: 20140711
  Serious: Yes (Other)
  Sender: FDA-Public Use
  Company Number: CA-AMGEN-CANSP2013084209

PATIENT
  Age: 56 Year
  Sex: Male

DRUGS (5)
  1. PROLIA [Suspect]
     Indication: OSTEOPOROSIS
     Dosage: UNK
     Route: 065
     Dates: start: 2013
  2. CYMBALTA [Concomitant]
  3. VALTREX [Concomitant]
  4. CLONAZEPAM [Concomitant]
  5. WELLBUTRIN [Concomitant]

REACTIONS (2)
  - B-cell lymphoma [Unknown]
  - Malaise [Unknown]
